FAERS Safety Report 21525632 (Version 3)
Quarter: 2022Q4

REPORT INFORMATION
  Report Type: Spontaneous
  Country: US (occurrence: US)
  Receive Date: 20221031
  Receipt Date: 20221223
  Transmission Date: 20230113
  Serious: Yes (Death, Hospitalization)
  Sender: FDA-Public Use
  Company Number: US-JNJFOC-20221059002

PATIENT
  Age: 22 Year
  Sex: Female

DRUGS (3)
  1. OPSUMIT [Suspect]
     Active Substance: MACITENTAN
     Indication: Product used for unknown indication
     Route: 048
     Dates: start: 20220409, end: 20221118
  2. VELETRI [Suspect]
     Active Substance: EPOPROSTENOL
     Indication: Pulmonary arterial hypertension
     Route: 042
     Dates: start: 20220207
  3. VELETRI [Suspect]
     Active Substance: EPOPROSTENOL
     Route: 042
     Dates: start: 20220209

REACTIONS (2)
  - Respiratory failure [Fatal]
  - Hospitalisation [Unknown]

NARRATIVE: CASE EVENT DATE: 20220101
